FAERS Safety Report 23463507 (Version 1)
Quarter: 2024Q1

REPORT INFORMATION
  Report Type: Spontaneous
  Country: US (occurrence: US)
  Receive Date: 20240131
  Receipt Date: 20240131
  Transmission Date: 20240409
  Serious: Yes (Hospitalization)
  Sender: FDA-Public Use
  Company Number: US-BRISTOL-MYERS SQUIBB COMPANY-2024-014297

PATIENT
  Age: 77 Year
  Sex: Female

DRUGS (66)
  1. REVLIMID [Suspect]
     Active Substance: LENALIDOMIDE
     Indication: Plasma cell myeloma
     Route: 048
     Dates: start: 20191211, end: 202401
  2. ACETAMINOPHEN [Concomitant]
     Active Substance: ACETAMINOPHEN
     Indication: Pain
     Dosage: TAKE 975 MG (3 TABLETS) BY MOUTH EVERY 8 HOURS
     Route: 048
  3. ACETAMINOPHEN [Concomitant]
     Active Substance: ACETAMINOPHEN
     Route: 048
  4. AMOXICILLIN\CLAVULANATE POTASSIUM [Concomitant]
     Active Substance: AMOXICILLIN\CLAVULANATE POTASSIUM
     Indication: Product used for unknown indication
     Dosage: 500-125 MG TABLET
     Route: 048
  5. AMOXICILLIN\CLAVULANATE POTASSIUM [Concomitant]
     Active Substance: AMOXICILLIN\CLAVULANATE POTASSIUM
     Dosage: 500-125 MG TABLET
     Route: 048
  6. AMOXICILLIN [Concomitant]
     Active Substance: AMOXICILLIN
     Indication: Product used for unknown indication
     Route: 048
  7. AMOXICILLIN [Concomitant]
     Active Substance: AMOXICILLIN
     Route: 048
  8. DICLOFENAC SODIUM [Concomitant]
     Active Substance: DICLOFENAC\DICLOFENAC SODIUM
     Indication: Product used for unknown indication
     Route: 048
  9. CYCLOBENZAPRINE [Concomitant]
     Active Substance: CYCLOBENZAPRINE
     Indication: Product used for unknown indication
     Route: 048
  10. DIALYVITE WITH ZINC [Concomitant]
     Active Substance: ASCORBIC ACID\BIOTIN\CALCIUM PANTOTHENATE\COBALAMIN\FOLIC ACID\NIACINAMIDE\PYRIDOXINE HYDROCHLORIDE\
     Indication: Product used for unknown indication
     Route: 048
  11. BENZONATATE [Concomitant]
     Active Substance: BENZONATATE
     Indication: Cough
     Dosage: TAKE 1 OR 2 CAPSULES 3 TIMES AS NEEDED
     Route: 048
  12. BENZONATATE [Concomitant]
     Active Substance: BENZONATATE
     Route: 048
  13. CEPHALEXIN [Concomitant]
     Active Substance: CEPHALEXIN
     Indication: Product used for unknown indication
     Dosage: FOR 5 DAYS
     Route: 048
  14. MODERNA COVID-19 VACCINE, BIVALENT (ORIGINAL AND OMICRON BA.4/BA.5) [Concomitant]
     Indication: Product used for unknown indication
     Dosage: 0.5 ML IN THE MUSCLE AS DIRECTED
     Route: 041
  15. CHLORHEXIDINE [Concomitant]
     Active Substance: CHLORHEXIDINE\CHLORHEXIDINE GLUCONATE
     Indication: Product used for unknown indication
     Dosage: RINSE WITH 1/2 OUNCE FOR 30 SECONDS, EXPECTORATE, DO NOT RINSE WITH WATER, EAT OR DRINK FOR 30 MIN A
     Route: 048
  16. ASPERCREME WITH LIDOCAINE [Concomitant]
     Active Substance: LIDOCAINE
     Indication: Product used for unknown indication
     Route: 062
  17. DOXYCYCLINE HYCLATE [Concomitant]
     Active Substance: DOXYCYCLINE HYCLATE
     Indication: Product used for unknown indication
     Route: 048
  18. GABAPENTIN [Concomitant]
     Active Substance: GABAPENTIN
     Indication: Product used for unknown indication
     Route: 048
  19. GABAPENTIN [Concomitant]
     Active Substance: GABAPENTIN
     Dosage: TAKE 2 CAPSULES 3 TIMES A DAY
     Route: 048
  20. ELIQUIS [Concomitant]
     Active Substance: APIXABAN
     Indication: Coagulopathy
     Dosage: FOR 3 MONTHS
     Route: 048
  21. ESZOPICLONE [Concomitant]
     Active Substance: ESZOPICLONE
     Indication: Product used for unknown indication
     Route: 048
  22. IBUPROFEN [Concomitant]
     Active Substance: IBUPROFEN
     Indication: Pain
     Route: 048
  23. IBUPROFEN [Concomitant]
     Active Substance: IBUPROFEN
     Route: 048
  24. LEVOTHYROXINE [Concomitant]
     Active Substance: LEVOTHYROXINE\LEVOTHYROXINE SODIUM
     Indication: Product used for unknown indication
     Dosage: EMPTY STOMACHH
     Route: 048
  25. HYDROMORPHONE HCL [Concomitant]
     Active Substance: HYDROMORPHONE HYDROCHLORIDE
     Indication: Pain
     Route: 048
  26. FERROUS SULFATE [Concomitant]
     Active Substance: FERROUS SULFATE
     Indication: Product used for unknown indication
     Dosage: 325 MG (5GR)
     Route: 048
  27. KETOCONAZOLE [Concomitant]
     Active Substance: KETOCONAZOLE
     Indication: Product used for unknown indication
     Dosage: TWICE DAILY FOR 21 DAYS
     Route: 061
  28. KETOCONAZOLE [Concomitant]
     Active Substance: KETOCONAZOLE
     Dosage: TWICE DAILY FOR 14 DAYS
     Route: 061
  29. FLUAD QUAD [Concomitant]
     Indication: Product used for unknown indication
     Dosage: 0.5ML IN THE MUSCLE AS DIRECTED TODAY
     Route: 041
  30. FLUTICASONE [Concomitant]
     Active Substance: FLUTICASONE
     Indication: Product used for unknown indication
     Dosage: 2 SPRAY IN EACH NOSTRIL EVERY DAY
     Route: 045
  31. FLUZONE HIGH-DOSE NOS [Concomitant]
     Active Substance: INFLUENZA A VIRUS A/CALIFORNIA/7/2009 X-179A (H1N1) ANTIGEN (FORMALDEHYDE INACTIVATED)\INFLUENZA A V
     Indication: Product used for unknown indication
     Dosage: 0.5ML IN THE MUSCLE AS DIRECTED TODAY
     Route: 041
  32. LIDOCAINE [Concomitant]
     Active Substance: LIDOCAINE
     Indication: Pain
     Dosage: 1 PATCH
     Route: 062
  33. METHOCARBAMOL [Concomitant]
     Active Substance: METHOCARBAMOL
     Indication: Pain
     Route: 048
  34. METHOCARBAMOL [Concomitant]
     Active Substance: METHOCARBAMOL
     Indication: Muscle spasms
     Route: 048
  35. METHOCARBAMOL [Concomitant]
     Active Substance: METHOCARBAMOL
     Route: 048
  36. NAPROXEN [Concomitant]
     Active Substance: NAPROXEN
     Indication: Pain
     Route: 048
  37. NAPROXEN [Concomitant]
     Active Substance: NAPROXEN
     Route: 048
  38. NAPROXEN [Concomitant]
     Active Substance: NAPROXEN
     Route: 048
  39. PAROXETINE [Concomitant]
     Active Substance: PAROXETINE
     Indication: Product used for unknown indication
     Route: 048
  40. PAROXETINE [Concomitant]
     Active Substance: PAROXETINE
     Route: 048
  41. PAROXETINE [Concomitant]
     Active Substance: PAROXETINE
     Route: 048
  42. METHYLPREDNISOLONE [Concomitant]
     Active Substance: METHYLPREDNISOLONE
     Indication: Product used for unknown indication
     Dosage: TAKE AS DIRECTED ON THE PACKAGE INSTRUCTION
  43. METOPROLOL SUCCINATE [Concomitant]
     Active Substance: METOPROLOL SUCCINATE
     Indication: Pain
     Dosage: TAKE 1/2 TAB BY MOUTH DAILY
     Route: 048
  44. METRONIDAZOLE [Concomitant]
     Active Substance: METRONIDAZOLE
     Indication: Pain
     Dosage: APPLY TOPICALLY TO AFFECTED AREA TWICE DAILY
     Route: 061
  45. PAXLOVID [Concomitant]
     Active Substance: NIRMATRELVIR\RITONAVIR
     Indication: Product used for unknown indication
     Dosage: TAKE 2 TABLETS BY MOUTH
     Route: 048
  46. PREVALITE [Concomitant]
     Active Substance: CHOLESTYRAMINE
     Indication: Product used for unknown indication
     Dosage: MIX AND DRINK 1 PACKET BY MOUTH EVERY DAY
     Route: 048
  47. PROMETHAZINE [Concomitant]
     Active Substance: PROMETHAZINE HYDROCHLORIDE
     Indication: Cough
     Dosage: TAKE 5 TO 10 ML BY MOUTH EVERY 6 TO 8 HOURS AS NEEDED
     Route: 048
  48. TIZANIDINE [Concomitant]
     Active Substance: TIZANIDINE
     Indication: Product used for unknown indication
     Route: 048
  49. TRAMADOL [Concomitant]
     Active Substance: TRAMADOL\TRAMADOL HYDROCHLORIDE
     Indication: Pain
     Route: 048
  50. TRAMADOL [Concomitant]
     Active Substance: TRAMADOL\TRAMADOL HYDROCHLORIDE
     Route: 048
  51. TRAMADOL [Concomitant]
     Active Substance: TRAMADOL\TRAMADOL HYDROCHLORIDE
     Route: 048
  52. TRAMADOL [Concomitant]
     Active Substance: TRAMADOL\TRAMADOL HYDROCHLORIDE
     Route: 048
  53. TRAMADOL [Concomitant]
     Active Substance: TRAMADOL\TRAMADOL HYDROCHLORIDE
     Route: 048
  54. AREXVY [Concomitant]
     Active Substance: RECOMBINANT RESPIRATORY SYNCYTIAL VIRUS PRE-FUSION F PROTEIN
     Indication: Product used for unknown indication
     Dosage: 0.5 ML IN THE MUSCLE AS DIRECTED
     Route: 041
  55. SHINGRIX [Concomitant]
     Active Substance: RECOMBINANT VARICELLA ZOSTER VIRUS (VZV) GLYCOPROTEIN E
     Indication: Product used for unknown indication
     Dosage: 0.5 ML IN THE MUSCLE
     Route: 041
  56. SPIKEVAX [Concomitant]
     Indication: COVID-19
     Dosage: 23-24 PFS, 0.5 ML IN THE MUSCLE
     Route: 041
  57. VITAMIN B12 [Concomitant]
     Active Substance: CYANOCOBALAMIN
     Indication: Product used for unknown indication
     Route: 048
  58. VITAMIN C [Concomitant]
     Active Substance: ASCORBIC ACID
     Indication: Product used for unknown indication
     Route: 048
  59. VITAMIN D3 [Concomitant]
     Active Substance: CHOLECALCIFEROL
     Indication: Product used for unknown indication
     Route: 048
  60. ALLEGRA ALLERGY [Concomitant]
     Active Substance: FEXOFENADINE HYDROCHLORIDE
     Indication: Product used for unknown indication
  61. ASPIRIN [Concomitant]
     Active Substance: ASPIRIN
     Indication: Product used for unknown indication
     Dosage: LOW DOSE
  62. CALCIUM CITRATE\CHOLECALCIFEROL [Concomitant]
     Active Substance: CALCIUM CITRATE\CHOLECALCIFEROL
     Indication: Product used for unknown indication
  63. VITAMINS [Concomitant]
     Active Substance: VITAMINS
     Indication: Product used for unknown indication
     Dosage: 50+ ADULT
  64. ERGOCALCIFEROL [Concomitant]
     Active Substance: ERGOCALCIFEROL
     Indication: Product used for unknown indication
     Dosage: 50+ ADULT
  65. ZOMETA [Concomitant]
     Active Substance: ZOLEDRONIC ACID
     Indication: Product used for unknown indication
     Dosage: 4 MG/5ML
  66. TRIAMCINOLONE [Concomitant]
     Active Substance: TRIAMCINOLONE
     Indication: Product used for unknown indication
     Dosage: APPLY THE AFFECTED AREA TWICE DAILY FOR 14 DAYS
     Route: 061

REACTIONS (1)
  - Hospitalisation [Unknown]

NARRATIVE: CASE EVENT DATE: 20240101
